FAERS Safety Report 23326237 (Version 1)
Quarter: 2023Q4

REPORT INFORMATION
  Report Type: Spontaneous
  Country: GB (occurrence: GB)
  Receive Date: 20231221
  Receipt Date: 20231221
  Transmission Date: 20240110
  Serious: Yes (Life-Threatening)
  Sender: FDA-Public Use
  Company Number: None

PATIENT
  Age: 96 Year
  Weight: 54 kg

DRUGS (17)
  1. DOXYCYCLINE [Suspect]
     Active Substance: DOXYCYCLINE
     Indication: Ill-defined disorder
     Dosage: TWO NOW THEN ONE DAILY
     Route: 065
     Dates: start: 20231201
  2. DOXYCYCLINE [Suspect]
     Active Substance: DOXYCYCLINE
     Indication: Ill-defined disorder
     Dosage: TWO NOW THEN ONE DAILY
     Route: 065
     Dates: start: 20231201
  3. GABAPENTIN [Concomitant]
     Active Substance: GABAPENTIN
     Indication: Product used for unknown indication
     Dosage: TIME INTERVAL: 0.33333333 DAYS: TWO MORNING , TWO LUNCHTIME , TWO A NIGHT
     Dates: start: 20210510
  4. CITALOPRAM [Concomitant]
     Active Substance: CITALOPRAM HYDROBROMIDE
     Indication: Product used for unknown indication
     Dosage: TAKE ONE TABLET DAILY (DOSE REDUCED FROM 20MG)
     Dates: start: 20230208
  5. BUTYLSCOPOLAMINE BROMIDE [Concomitant]
     Active Substance: BUTYLSCOPOLAMINE BROMIDE
     Indication: Product used for unknown indication
     Dosage: 20MG SUBCUTANEOUSLY EVERY 4 HOURS WHEN REQUIRED...
     Route: 058
     Dates: start: 20231113
  6. AMOXICILLIN [Concomitant]
     Active Substance: AMOXICILLIN
     Indication: Product used for unknown indication
     Dosage: TIME INTERVAL: 0.33333333 DAYS: TAKE ONE 3 TIMES/DAY
     Dates: start: 20231110, end: 20231117
  7. ACETAMINOPHEN [Concomitant]
     Active Substance: ACETAMINOPHEN
     Indication: Product used for unknown indication
     Dosage: TAKE TWO TABLETS FOUR TIMES DAILY
     Dates: start: 20211119
  8. MORPHINE SULFATE [Concomitant]
     Active Substance: MORPHINE SULFATE
     Indication: Product used for unknown indication
     Dosage: 2.5MG EVERY 4 HOURS SUBCUTANEOUSLY OR 10MG OVER...
     Route: 058
     Dates: start: 20231003
  9. ADCAL [Concomitant]
     Indication: Product used for unknown indication
     Dosage: TAKE  ONE DAILY
     Dates: start: 20230208
  10. HALOPERIDOL [Concomitant]
     Active Substance: HALOPERIDOL
     Indication: Product used for unknown indication
     Dosage: 1MG (0.2ML) S/C EVERY 4 HOURS WHEN REQUIRED FOR...
     Route: 058
     Dates: start: 20231113, end: 20231114
  11. IBUPROFEN [Concomitant]
     Active Substance: IBUPROFEN
     Indication: Product used for unknown indication
     Dosage: APPLY 3-4 TIMES/DAY
     Dates: start: 20230710
  12. BUPRENORPHINE [Concomitant]
     Active Substance: BUPRENORPHINE
     Indication: Product used for unknown indication
     Dosage: APPLY ONE PATCH AND CHANGE EVERY 7 DAYS. APPLY ...
     Dates: start: 20210728
  13. MIDAZOLAM [Concomitant]
     Active Substance: MIDAZOLAM
     Indication: Product used for unknown indication
     Dosage: 2.5MG (0.5ML) SUBCUTANEOUSLY EVERY 2 HOURS WHEN...
     Route: 058
     Dates: start: 20231113
  14. FUSIDIC ACID [Concomitant]
     Active Substance: FUSIDIC ACID
     Indication: Product used for unknown indication
     Dosage: TIME INTERVAL: 0.33333333 DAYS: THREE TIMES DAILY
     Dates: start: 20231204
  15. POLYETHYLENE GLYCOL 3350\POTASSIUM CHLORIDE\SODIUM BICARBONATE\SODIUM [Concomitant]
     Active Substance: POLYETHYLENE GLYCOL 3350\POTASSIUM CHLORIDE\SODIUM BICARBONATE\SODIUM CHLORIDE
     Indication: Constipation
     Dosage: TIME INTERVAL: AS NECESSARY: TAKE ONE OR TWO SACHETS AS NEEDED FOR CONSTIPATION
     Dates: start: 20210510
  16. CODEINE PHOSPHATE [Concomitant]
     Active Substance: CODEINE PHOSPHATE
     Indication: Pain
     Dosage: TIME INTERVAL: AS NECESSARY: TAKE ONE UP TO 4 TIMES/DAY WHEN REQUIRED FOR PA.
     Dates: start: 20230913, end: 20230920
  17. WATER [Concomitant]
     Active Substance: WATER
     Indication: Product used for unknown indication
     Dosage: USE AS DIRECTED
     Dates: start: 20231113, end: 20231114

REACTIONS (1)
  - Suicidal ideation [Unknown]
